FAERS Safety Report 14386073 (Version 1)
Quarter: 2018Q1

REPORT INFORMATION
  Report Type: Report from Study
  Country: IN (occurrence: IN)
  Receive Date: 20180115
  Receipt Date: 20180115
  Transmission Date: 20180509
  Serious: Yes (Death, Hospitalization)
  Sender: FDA-Public Use
  Company Number: IN-ELI_LILLY_AND_COMPANY-IN201801005373

PATIENT
  Age: 65 Year
  Sex: Male

DRUGS (2)
  1. INSULIN, LISPRO [Suspect]
     Active Substance: INSULIN LISPRO
     Indication: DIABETES MELLITUS
     Dosage: 20 U, EACH MORNING
     Route: 058
     Dates: start: 20171125
  2. INSULIN, LISPRO [Suspect]
     Active Substance: INSULIN LISPRO
     Dosage: 10 U, EACH EVENING
     Route: 058
     Dates: start: 20171125

REACTIONS (5)
  - Hypotension [Fatal]
  - Liver injury [Fatal]
  - Renal injury [Fatal]
  - Blood glucose decreased [Fatal]
  - Swelling [Fatal]

NARRATIVE: CASE EVENT DATE: 20171220
